FAERS Safety Report 5946546-6 (Version None)
Quarter: 2008Q4

REPORT INFORMATION
  Report Type: 
  Country: None (occurrence: None)
  Receive Date: 20081110
  Receipt Date: 20081031
  Transmission Date: 20090506
  Serious: Yes (Other)
  Sender: FDA-Public Use
  Company Number: B0545444A

PATIENT
  Sex: Male

DRUGS (3)
  1. EPIVIR [Suspect]
     Indication: HIV INFECTION
     Dates: start: 20040809, end: 20040820
  2. SUSTIVA [Suspect]
     Indication: HIV INFECTION
     Dates: start: 20040809, end: 20040820
  3. ZIAGEN [Suspect]
     Indication: HIV INFECTION
     Dates: start: 20040809, end: 20040820

REACTIONS (1)
  - DRUG RASH WITH EOSINOPHILIA AND SYSTEMIC SYMPTOMS [None]
